FAERS Safety Report 7280879-9 (Version None)
Quarter: 2011Q1

REPORT INFORMATION
  Report Type: 
  Country: None (occurrence: None)
  Receive Date: 20110207
  Receipt Date: 20110207
  Transmission Date: 20110831
  Serious: Yes (Other)
  Sender: FDA-Public Use
  Company Number: None

PATIENT
  Age: 60 Year
  Sex: Female
  Weight: 44.9061 kg

DRUGS (1)
  1. TRIAD ALCOHOL PADS [Suspect]

REACTIONS (8)
  - MALAISE [None]
  - RASH [None]
  - FATIGUE [None]
  - WEIGHT DECREASED [None]
  - DECREASED APPETITE [None]
  - ERYTHEMA [None]
  - DYSPNOEA [None]
  - PRURITUS [None]
